FAERS Safety Report 11193525 (Version 5)
Quarter: 2015Q3

REPORT INFORMATION
  Report Type: Spontaneous
  Country: JP (occurrence: JP)
  Receive Date: 20150616
  Receipt Date: 20150731
  Transmission Date: 20151125
  Serious: Yes (Death, Hospitalization, Other)
  Sender: FDA-Public Use
  Company Number: JP-BAYER-2015-323342

PATIENT
  Age: 74 Year
  Sex: Male
  Weight: 67 kg

DRUGS (6)
  1. BAYASPIRIN [Suspect]
     Active Substance: ASPIRIN
     Indication: ATHEROSCLEROSIS PROPHYLAXIS
     Dosage: DAILY DOSE 100 MG
     Route: 048
     Dates: end: 20111013
  2. EPADEL [Concomitant]
     Active Substance: ICOSAPENT
     Indication: PERIPHERAL ARTERIAL OCCLUSIVE DISEASE
     Dosage: 1800 MG, QD
     Route: 048
     Dates: start: 20100527, end: 20111013
  3. PREDNISOLONE. [Suspect]
     Active Substance: PREDNISOLONE
     Indication: POLYMYALGIA RHEUMATICA
     Dosage: DAILY DOSE 5 MG
     Route: 048
     Dates: start: 20100305
  4. PREDNISOLONE. [Suspect]
     Active Substance: PREDNISOLONE
     Indication: POLYMYALGIA RHEUMATICA
     Dosage: UNK
     Route: 048
     Dates: start: 20100406, end: 20111013
  5. THYRADIN S [Concomitant]
     Active Substance: LEVOTHYROXINE SODIUM
     Indication: HYPOTHYROIDISM
     Dosage: DAILY DOSE 50 ?G
     Route: 048
     Dates: end: 20111013
  6. TAKEPRON [Concomitant]
     Active Substance: LANSOPRAZOLE
     Indication: HAEMORRHAGE PROPHYLAXIS
     Dosage: DAILY DOSE 15 MG
     Route: 048
     Dates: end: 20111013

REACTIONS (5)
  - Peritonitis [Fatal]
  - Cardiac arrest [Fatal]
  - Colitis ischaemic [Fatal]
  - Abdominal pain [Fatal]
  - Ileal ulcer perforation [Fatal]

NARRATIVE: CASE EVENT DATE: 20111012
